FAERS Safety Report 9689547 (Version 2)
Quarter: 2013Q4

REPORT INFORMATION
  Report Type: Report from Study
  Country: US (occurrence: US)
  Receive Date: 20131115
  Receipt Date: 20131115
  Transmission Date: 20140711
  Serious: Yes (Hospitalization)
  Sender: FDA-Public Use
  Company Number: US-ROCHE-1266284

PATIENT
  Sex: Female

DRUGS (5)
  1. ZELBORAF [Suspect]
     Indication: MALIGNANT MELANOMA
     Dosage: 4 TABLETS
     Route: 048
     Dates: start: 20130612
  2. ZELBORAF [Suspect]
     Dosage: 3 TABLETS EVERY SIX HRS AFTER EATTING
     Route: 048
     Dates: start: 20131010
  3. SIMVASTATIN [Concomitant]
     Route: 065
  4. LASIX [Concomitant]
     Route: 065
  5. ALPRAZOLAM [Concomitant]
     Indication: ANXIETY
     Dosage: SHE STATES THAT SHE TAKES ^25MG^ - ASKED HER TWICE
     Route: 065

REACTIONS (6)
  - Blood potassium decreased [Recovered/Resolved]
  - Rash [Recovered/Resolved]
  - Cardiac disorder [Unknown]
  - Skin discolouration [Unknown]
  - Nausea [Unknown]
  - Vomiting [Unknown]
